FAERS Safety Report 7513823-7 (Version None)
Quarter: 2011Q2

REPORT INFORMATION
  Report Type: 
  Country: None (occurrence: None)
  Receive Date: 20110531
  Receipt Date: 20110415
  Transmission Date: 20111010
  Serious: Yes (Death, Hospitalization)
  Sender: FDA-Public Use
  Company Number: IT-BAYER-2011-033197

PATIENT
  Age: 82 Year
  Sex: Female

DRUGS (3)
  1. AVELOX [Suspect]
     Indication: ACUTE TONSILLITIS
     Dosage: DAILY DOSE 400 MG
     Route: 048
     Dates: start: 20090805, end: 20090805
  2. COUMADIN [Suspect]
     Indication: ATRIAL FIBRILLATION
     Dosage: DAILY DOSE 5 MG
     Route: 048
     Dates: start: 20090505, end: 20090805
  3. TAPAZOLE [Suspect]
     Indication: THYROID DISORDER
     Dosage: DAILY DOSE 5 MG
     Route: 048
     Dates: start: 20090505, end: 20090805

REACTIONS (10)
  - OROPHARYNGEAL PAIN [None]
  - SPLENIC INFARCTION [None]
  - AGRANULOCYTOSIS [None]
  - GASTRIC HAEMORRHAGE [None]
  - RENAL FAILURE ACUTE [None]
  - HEPATITIS ACUTE [None]
  - ASTHENIA [None]
  - DYSPNOEA [None]
  - THROMBOCYTOPENIA [None]
  - METABOLIC ACIDOSIS [None]
